FAERS Safety Report 4743495-6 (Version None)
Quarter: 2005Q3

REPORT INFORMATION
  Report Type: 
  Country: None (occurrence: None)
  Receive Date: 20050810
  Receipt Date: 20050810
  Transmission Date: 20060218
  Serious: No
  Sender: FDA-Public Use
  Company Number: None

PATIENT
  Age: 71 Year
  Sex: Male
  Weight: 86.1834 kg

DRUGS (4)
  1. ENBREL [Suspect]
     Indication: RHEUMATOID ARTHRITIS
     Dosage: 2 X WK
     Dates: start: 20010101
  2. PREDNISONE [Concomitant]
  3. ATENOLOL [Concomitant]
  4. ALPHAGAN [Concomitant]

REACTIONS (1)
  - HEADACHE [None]
